FAERS Safety Report 10792000 (Version 1)
Quarter: 2015Q1

REPORT INFORMATION
  Report Type: Report from Study
  Country: CA (occurrence: CA)
  Receive Date: 20150213
  Receipt Date: 20150213
  Transmission Date: 20150721
  Serious: Yes (Hospitalization, Other)
  Sender: FDA-Public Use
  Company Number: CA-JNJFOC-20140702603

PATIENT
  Sex: Male
  Weight: 52.62 kg

DRUGS (4)
  1. REMICADE [Suspect]
     Active Substance: INFLIXIMAB
     Indication: COLITIS ULCERATIVE
     Route: 042
     Dates: start: 20140305, end: 20140305
  2. PREDNISONE. [Concomitant]
     Active Substance: PREDNISONE
     Dosage: AT HOME ROUTE OF ADMIN PILL 40-50MG/DAY ORALLY
     Route: 065
  3. PREDNISONE. [Concomitant]
     Active Substance: PREDNISONE
     Dosage: AT HOME ROUTE OF ADMIN PILL 40-50MG/DAY ORALLY
     Route: 048
  4. REMICADE [Suspect]
     Active Substance: INFLIXIMAB
     Indication: COLITIS ULCERATIVE
     Route: 042
     Dates: start: 20140101

REACTIONS (7)
  - Weight decreased [Unknown]
  - Dehydration [Recovering/Resolving]
  - Transfusion [Unknown]
  - Malnutrition [Unknown]
  - Colectomy total [Unknown]
  - Drug effect decreased [Unknown]
  - Colitis ulcerative [Recovering/Resolving]

NARRATIVE: CASE EVENT DATE: 2014
